FAERS Safety Report 15576108 (Version 1)
Quarter: 2018Q4

REPORT INFORMATION
  Report Type: Spontaneous
  Country: GB (occurrence: GB)
  Receive Date: 20181101
  Receipt Date: 20181101
  Transmission Date: 20190205
  Serious: Yes (Hospitalization, Other)
  Sender: FDA-Public Use
  Company Number: GB-TEVA-2018-GB-970819

PATIENT
  Age: 46 Year
  Sex: Female
  Weight: 155 kg

DRUGS (2)
  1. WARFARIN [Concomitant]
     Active Substance: WARFARIN
     Dosage: ALTERNATES BETWEEN 5MG AND 6MG DAILY
     Route: 065
     Dates: start: 2011
  2. COCODAMOL [Suspect]
     Active Substance: ACETAMINOPHEN\CODEINE PHOSPHATE
     Indication: ARTHRALGIA
     Dosage: 1000 MILLIGRAM DAILY;
     Route: 065
     Dates: start: 201807, end: 20181002

REACTIONS (3)
  - Migraine [Recovering/Resolving]
  - Dysgeusia [Recovering/Resolving]
  - International normalised ratio decreased [Recovering/Resolving]

NARRATIVE: CASE EVENT DATE: 20181001
